FAERS Safety Report 12609513 (Version 1)
Quarter: 2016Q3

REPORT INFORMATION
  Report Type: Spontaneous
  Country: SE (occurrence: SE)
  Receive Date: 20160801
  Receipt Date: 20160801
  Transmission Date: 20161109
  Serious: Yes (Death, Hospitalization, Other)
  Sender: FDA-Public Use
  Company Number: SE-TEVA-681013ACC

PATIENT
  Age: 54 Year
  Sex: Male

DRUGS (5)
  1. MABTHERA [Concomitant]
     Active Substance: RITUXIMAB
     Route: 042
     Dates: start: 201512, end: 201605
  2. MABTHERA [Concomitant]
     Active Substance: RITUXIMAB
     Route: 058
     Dates: start: 201512, end: 201605
  3. RIBOVACT [Suspect]
     Active Substance: BENDAMUSTINE HYDROCHLORIDE
     Indication: B-CELL LYMPHOMA
     Dosage: TOTAL OF 360 MG/M2 AND 2400 MG/M2
     Route: 042
  4. MABTHERA [Concomitant]
     Active Substance: RITUXIMAB
     Indication: B-CELL LYMPHOMA
     Route: 065
  5. RIBOVACT [Suspect]
     Active Substance: BENDAMUSTINE HYDROCHLORIDE
     Dosage: 800 MG/M2, CYCLIC (6 TWO DAY REGIMENS)
     Route: 042
     Dates: start: 20151209, end: 20160512

REACTIONS (6)
  - Arrhythmia [Unknown]
  - Myocarditis [Fatal]
  - Syncope [Unknown]
  - Atrial fibrillation [Unknown]
  - B-cell lymphoma [Unknown]
  - Bundle branch block right [Unknown]

NARRATIVE: CASE EVENT DATE: 2015
